FAERS Safety Report 5275970-2 (Version None)
Quarter: 2007Q1

REPORT INFORMATION
  Report Type: 
  Country: None (occurrence: None)
  Receive Date: 20070326
  Receipt Date: 20070316
  Transmission Date: 20070707
  Serious: Yes (Other)
  Sender: FDA-Public Use
  Company Number: CA-ROCHE-488008

PATIENT
  Age: 84 Year
  Sex: Male
  Weight: 66 kg

DRUGS (6)
  1. NAPROSYN [Suspect]
     Indication: DRUG USE FOR UNKNOWN INDICATION
     Route: 048
  2. CLINDAMYCIN [Concomitant]
  3. TYLENOL [Concomitant]
  4. GABAPENTIN [Concomitant]
  5. FENTANYL [Concomitant]
  6. PARIET [Concomitant]

REACTIONS (3)
  - FAECES DISCOLOURED [None]
  - HAEMATEMESIS [None]
  - HAEMOGLOBIN DECREASED [None]
